FAERS Safety Report 7101872-2 (Version None)
Quarter: 2010Q4

REPORT INFORMATION
  Report Type: 
  Country: None (occurrence: None)
  Receive Date: 20101108
  Receipt Date: 20101026
  Transmission Date: 20110411
  Serious: Yes (Other)
  Sender: FDA-Public Use
  Company Number: 2010AP002285

PATIENT
  Age: 83 Year
  Sex: Female

DRUGS (10)
  1. CITALOPRAM HYDROBROMIDE [Suspect]
     Indication: ANXIETY
     Dosage: 10 MG; PO
     Route: 048
  2. OMEPRAZOLE [Suspect]
     Indication: DYSPEPSIA
     Dosage: 20 MG; PO
     Route: 048
     Dates: end: 20101017
  3. BENDROFLUMETHIAZIDE (BENDROFLUMETHIAZIDE) [Concomitant]
  4. CIPROFLOXACIN [Concomitant]
  5. FLECAINIDE ACETATE [Concomitant]
  6. MACROGOL (MACROGOL) [Concomitant]
  7. POTASSIUM CHLORIDE [Concomitant]
  8. SODIUM BICARBONATE IN PLASTIC CONTAINER [Concomitant]
  9. SODIUM CHLORIDE 0.9% [Concomitant]
  10. ZOPICLONE (ZOPICLONE) [Concomitant]

REACTIONS (2)
  - ANGIOEDEMA [None]
  - DRUG INTERACTION [None]
